FAERS Safety Report 18564273 (Version 6)
Quarter: 2020Q4

REPORT INFORMATION
  Report Type: Spontaneous
  Country: ES (occurrence: ES)
  Receive Date: 20201201
  Receipt Date: 20201215
  Transmission Date: 20210114
  Serious: Yes (Life-Threatening, Hospitalization, Other)
  Sender: FDA-Public Use
  Company Number: NVSC2020ES259403

PATIENT
  Age: 14 Year
  Sex: Male

DRUGS (10)
  1. PALIPERIDONE. [Suspect]
     Active Substance: PALIPERIDONE
     Indication: AGGRESSION
     Dosage: 6 MG, QD
     Route: 065
  2. SODIUM HEPARIN [Concomitant]
     Active Substance: HEPARIN SODIUM
     Indication: PRODUCT USED FOR UNKNOWN INDICATION
     Dosage: UNK
     Route: 065
  3. TIAPRIDE [Concomitant]
     Active Substance: TIAPRIDE
     Indication: PRODUCT USED FOR UNKNOWN INDICATION
     Dosage: UNK
     Route: 065
  4. ARIPIPRAZOLE. [Suspect]
     Active Substance: ARIPIPRAZOLE
     Indication: OPPOSITIONAL DEFIANT DISORDER
  5. PALIPERIDONE. [Suspect]
     Active Substance: PALIPERIDONE
     Dosage: 5 MG, Q24H
     Route: 065
  6. ARIPIPRAZOLE. [Suspect]
     Active Substance: ARIPIPRAZOLE
     Indication: AGGRESSION
     Dosage: 5 MG, Q24H
     Route: 065
  7. RISPERIDONE. [Suspect]
     Active Substance: RISPERIDONE
     Indication: OPPOSITIONAL DEFIANT DISORDER
     Dosage: 2 MG, QD
     Route: 065
  8. INVEGA [Suspect]
     Active Substance: PALIPERIDONE
     Indication: OPPOSITIONAL DEFIANT DISORDER
     Dosage: 3 MG, QD
     Route: 048
  9. PALIPERIDONE. [Suspect]
     Active Substance: PALIPERIDONE
     Indication: OPPOSITIONAL DEFIANT DISORDER
     Dosage: 3 MG, Q24H
     Route: 065
  10. INVEGA [Suspect]
     Active Substance: PALIPERIDONE
     Dosage: 6 MG, QD
     Route: 048

REACTIONS (4)
  - Deep vein thrombosis [Recovering/Resolving]
  - Pulmonary embolism [Recovered/Resolved]
  - Off label use [Unknown]
  - Product use in unapproved indication [Unknown]
